FAERS Safety Report 7647560-5 (Version None)
Quarter: 2011Q3

REPORT INFORMATION
  Report Type: 
  Country: None (occurrence: None)
  Receive Date: 20110801
  Receipt Date: 20110726
  Transmission Date: 20111222
  Serious: Yes (Hospitalization, Other)
  Sender: FDA-Public Use
  Company Number: US-PFIZER INC-2011170088

PATIENT
  Sex: Female
  Weight: 68 kg

DRUGS (8)
  1. CIPROFLOXACIN [Concomitant]
     Indication: LOCALISED INFECTION
     Dosage: UNK
  2. ATACAND [Concomitant]
     Indication: HYPERTENSION
     Dosage: UNK
  3. CYMBALTA [Concomitant]
     Indication: DEPRESSION
     Dosage: UNK
  4. PLAQUENIL [Concomitant]
     Indication: CHONDROCALCINOSIS PYROPHOSPHATE
     Dosage: UNK
  5. ZYVOX [Suspect]
     Indication: STAPHYLOCOCCAL INFECTION
     Dosage: 600 MG, 2X/DAY
     Route: 048
     Dates: start: 20110701, end: 20110701
  6. ARTHROTEC [Concomitant]
     Indication: ARTHRITIS
     Dosage: 75 MG, UNK
  7. CELEXA [Suspect]
     Dosage: UNK
     Dates: start: 20110701
  8. SYNTHROID [Concomitant]
     Indication: HYPOTHYROIDISM
     Dosage: UNK

REACTIONS (7)
  - HAEMORRHAGE [None]
  - ACCIDENTAL EXPOSURE [None]
  - FAECES DISCOLOURED [None]
  - ANAEMIA [None]
  - ATTENTION DEFICIT/HYPERACTIVITY DISORDER [None]
  - BLOOD TEST ABNORMAL [None]
  - PLATELET DISORDER [None]
